FAERS Safety Report 6908647-5 (Version None)
Quarter: 2010Q3

REPORT INFORMATION
  Report Type: 
  Country: None (occurrence: None)
  Receive Date: 20100805
  Receipt Date: 20100727
  Transmission Date: 20110219
  Serious: Yes (Hospitalization)
  Sender: FDA-Public Use
  Company Number: FR-PFIZER INC-2010069007

PATIENT
  Age: 77 Year
  Sex: Female
  Weight: 92 kg

DRUGS (9)
  1. ZYVOX [Suspect]
     Dosage: UNK
     Route: 042
     Dates: start: 20100325, end: 20100402
  2. PIPERACILLIN AND TAZOBACTAM [Suspect]
     Dosage: UNK
     Route: 042
     Dates: start: 20100325, end: 20100402
  3. FLUCONAZOLE [Concomitant]
     Dosage: UNK
     Dates: start: 20100320, end: 20100409
  4. COKENZEN [Concomitant]
  5. ZANIDIP [Concomitant]
  6. NEXIUM [Concomitant]
  7. VOLTAREN [Concomitant]
  8. IXPRIM [Concomitant]
  9. CYSTINE B6 BAILLEUL [Concomitant]

REACTIONS (2)
  - FIBROSIS [None]
  - HEPATITIS [None]
